FAERS Safety Report 15820299 (Version 1)
Quarter: 2019Q1

REPORT INFORMATION
  Report Type: Spontaneous
  Country: US (occurrence: US)
  Receive Date: 20190114
  Receipt Date: 20190114
  Transmission Date: 20190417
  Serious: Yes (Death)
  Sender: FDA-Public Use
  Company Number: US-MICRO LABS LIMITED-ML2019-00025

PATIENT
  Age: 49 Year
  Sex: Male

DRUGS (3)
  1. DIPHENHYDRAMINE HYDROCHLORIDE. [Suspect]
     Active Substance: DIPHENHYDRAMINE HYDROCHLORIDE
  2. ALPRAZOLAM. [Suspect]
     Active Substance: ALPRAZOLAM
  3. MORPHINE [Suspect]
     Active Substance: MORPHINE

REACTIONS (1)
  - Toxicity to various agents [Fatal]
